FAERS Safety Report 14505532 (Version 1)
Quarter: 2018Q1

REPORT INFORMATION
  Report Type: Spontaneous
  Country: US (occurrence: US)
  Receive Date: 20180207
  Receipt Date: 20180207
  Transmission Date: 20180509
  Serious: Yes (Other)
  Sender: FDA-Public Use
  Company Number: None

PATIENT

DRUGS (4)
  1. METOPROLOL. [Suspect]
     Active Substance: METOPROLOL
  2. RAMIPRIL. [Suspect]
     Active Substance: RAMIPRIL
  3. TAMSULOSIN [Concomitant]
     Active Substance: TAMSULOSIN
  4. EPLERENONE. [Concomitant]
     Active Substance: EPLERENONE

REACTIONS (7)
  - Blood glucose increased [None]
  - Subdural haemorrhage [None]
  - Pallor [None]
  - Loss of consciousness [None]
  - Head injury [None]
  - Fall [None]
  - Hyperhidrosis [None]
